FAERS Safety Report 4919779-5 (Version None)
Quarter: 2006Q1

REPORT INFORMATION
  Report Type: 
  Country: None (occurrence: None)
  Receive Date: 20060216
  Receipt Date: 20060131
  Transmission Date: 20060701
  Serious: Yes (Hospitalization)
  Sender: FDA-Public Use
  Company Number: 222017

PATIENT
  Age: 71 Year
  Sex: Male
  Weight: 105 kg

DRUGS (5)
  1. AVASTIN [Suspect]
     Indication: COLORECTAL CANCER METASTATIC
     Dosage: 750 MG, Q3W, INTRAVENOUS
     Route: 042
     Dates: start: 20050719
  2. CAPECITABINE(CAPECITABINE) [Suspect]
     Indication: COLORECTAL CANCER METASTATIC
     Dosage: 1000 MG/M2, ORAL
     Route: 048
     Dates: start: 20050719
  3. OXALIPLATIN(OXALIPATIN) [Suspect]
     Indication: COLORECTAL CANCER METASTATIC
     Dosage: 220 MG, Q3W, INTRAVENOUS
     Route: 042
     Dates: start: 20050719
  4. ENOXAPARIN SODIUM [Concomitant]
  5. INSULIN [Concomitant]

REACTIONS (2)
  - PULMONARY EMBOLISM [None]
  - TACHYARRHYTHMIA [None]
